FAERS Safety Report 8571477-5 (Version None)
Quarter: 2012Q3

REPORT INFORMATION
  Report Type: 
  Country: None (occurrence: None)
  Receive Date: 20120806
  Receipt Date: 20120802
  Transmission Date: 20120928
  Serious: No
  Sender: FDA-Public Use
  Company Number: US-B.I. PHARMACEUTICALS,INC./RIDGEFIELD-2012-BP-17471BP

PATIENT
  Age: 65 Year
  Sex: Female

DRUGS (5)
  1. TRADJENTA [Suspect]
     Indication: TYPE 2 DIABETES MELLITUS
     Dosage: 5 MG
     Route: 048
  2. UNSPECIFIED BETA BLOCKER [Concomitant]
  3. SIMVASTATIN [Concomitant]
  4. FUROSEMIDE [Concomitant]
  5. ASPIRIN [Concomitant]

REACTIONS (1)
  - PAIN IN EXTREMITY [None]
